FAERS Safety Report 9808804 (Version 3)
Quarter: 2014Q2

REPORT INFORMATION
  Report Type: Spontaneous
  Country: US (occurrence: US)
  Receive Date: 20140110
  Receipt Date: 20140411
  Transmission Date: 20141212
  Serious: Yes (Hospitalization)
  Sender: FDA-Public Use
  Company Number: US-GILEAD-2014-0091908

PATIENT
  Sex: Female

DRUGS (4)
  1. LETAIRIS [Suspect]
     Indication: PULMONARY HYPERTENSION
     Dosage: 10 MG, QD
     Route: 048
     Dates: start: 20100908
  2. LETAIRIS [Suspect]
     Indication: HEART DISEASE CONGENITAL
  3. VELETRI [Concomitant]
  4. ADCIRCA [Concomitant]

REACTIONS (4)
  - Medical device complication [Unknown]
  - Dysphagia [Unknown]
  - Device leakage [Unknown]
  - Medical device complication [Unknown]
